FAERS Safety Report 6108914-1 (Version None)
Quarter: 2009Q1

REPORT INFORMATION
  Report Type: 
  Country: None (occurrence: None)
  Receive Date: 20090310
  Receipt Date: 20090220
  Transmission Date: 20090719
  Serious: Yes (Death, Other)
  Sender: FDA-Public Use
  Company Number: US-BAYER-200817797NA

PATIENT
  Age: 52 Year
  Sex: Male

DRUGS (36)
  1. MAGNEVIST [Suspect]
     Indication: NUCLEAR MAGNETIC RESONANCE IMAGING
     Route: 042
  2. OMNISCAN [Suspect]
     Indication: NUCLEAR MAGNETIC RESONANCE IMAGING
     Route: 042
  3. OPTIMARK [Suspect]
     Indication: NUCLEAR MAGNETIC RESONANCE IMAGING
     Route: 042
  4. MULTIHANCE [Suspect]
     Indication: NUCLEAR MAGNETIC RESONANCE IMAGING
     Route: 042
  5. PROHANCE [Suspect]
     Indication: NUCLEAR MAGNETIC RESONANCE IMAGING
     Route: 042
  6. REGLAN [Concomitant]
  7. NEURONTIN [Concomitant]
     Route: 048
     Dates: start: 20040121
  8. PLAVIX [Concomitant]
     Route: 048
     Dates: start: 20030702
  9. LIPITOR [Concomitant]
  10. ASPIRIN [Concomitant]
     Route: 048
     Dates: start: 19971001
  11. PROTONIX [Concomitant]
     Route: 048
     Dates: start: 20040211
  12. NORVASC [Concomitant]
  13. AVANDIA [Concomitant]
     Route: 048
     Dates: start: 20030702
  14. METOPROLOL [Concomitant]
  15. LANOXIN [Concomitant]
     Dates: start: 20030627
  16. LEXAPRO [Concomitant]
     Route: 048
     Dates: start: 20040310
  17. LANTUS [Concomitant]
     Indication: DIABETES MELLITUS
     Route: 058
     Dates: start: 20030917
  18. AVAPRO [Concomitant]
  19. ZANTAC [Concomitant]
     Route: 048
     Dates: start: 20040121
  20. MIRAPEX [Concomitant]
  21. ATIVAN [Concomitant]
     Route: 048
     Dates: start: 20040121
  22. CREON [Concomitant]
     Route: 048
     Dates: start: 20031216
  23. PHOSLO [Concomitant]
     Route: 048
     Dates: start: 20030822
  24. EPOGEN [Concomitant]
     Route: 042
  25. TENORMIN [Concomitant]
     Route: 048
  26. GLUCOPHAGE [Concomitant]
     Route: 048
  27. DIABETA [Concomitant]
     Route: 048
  28. VASOTEC [Concomitant]
     Route: 048
  29. PROCARDIA XL [Concomitant]
     Route: 048
  30. CARDURA [Concomitant]
     Route: 048
  31. HYDROCHLOROTHIAZIDE [Concomitant]
     Route: 048
  32. LIPITOR [Concomitant]
     Route: 048
     Dates: start: 20040211
  33. MOTILIUM [Concomitant]
     Route: 048
     Dates: start: 20040211
  34. AVAPRO [Concomitant]
     Route: 048
     Dates: start: 20040310
  35. HECTOROL [Concomitant]
     Route: 048
     Dates: start: 20040310
  36. LOPRESSOR [Concomitant]
     Route: 048
     Dates: start: 20040310

REACTIONS (14)
  - ANXIETY [None]
  - EMOTIONAL DISTRESS [None]
  - FIBROSIS [None]
  - GENERAL PHYSICAL HEALTH DETERIORATION [None]
  - INJURY [None]
  - MOBILITY DECREASED [None]
  - MUSCLE CONTRACTURE [None]
  - NEPHROGENIC SYSTEMIC FIBROSIS [None]
  - NEUROPATHY PERIPHERAL [None]
  - OEDEMA PERIPHERAL [None]
  - PAIN [None]
  - SCAR [None]
  - SENSORY LOSS [None]
  - SKIN TIGHTNESS [None]
